FAERS Safety Report 18080292 (Version 3)
Quarter: 2020Q3

REPORT INFORMATION
  Report Type: Spontaneous
  Country: US (occurrence: US)
  Receive Date: 20200728
  Receipt Date: 20200909
  Transmission Date: 20201103
  Serious: No
  Sender: FDA-Public Use
  Company Number: US-APOTEX-2020AP014497

PATIENT
  Sex: Female

DRUGS (1)
  1. PAROXETINE HCL CONTROLLED RELEASE TABLETS [Suspect]
     Active Substance: PAROXETINE HYDROCHLORIDE
     Indication: PRODUCT USED FOR UNKNOWN INDICATION
     Dosage: 1 DOSAGE FORM, QD
     Route: 065

REACTIONS (4)
  - Feeling abnormal [Unknown]
  - Crying [Unknown]
  - Adverse event [Unknown]
  - Drug ineffective [Unknown]
